FAERS Safety Report 7966080-1 (Version None)
Quarter: 2011Q4

REPORT INFORMATION
  Report Type: 
  Country: None (occurrence: None)
  Receive Date: 20111208
  Receipt Date: 20111129
  Transmission Date: 20120403
  Serious: Yes (Disabling)
  Sender: FDA-Public Use
  Company Number: CA-ASTRAZENECA-2011SE47455

PATIENT
  Age: 70 Year
  Sex: Male

DRUGS (8)
  1. PREDNISONE TAB [Concomitant]
  2. ASPIRIN [Concomitant]
     Route: 048
  3. COZAAR [Concomitant]
  4. NEXIUM [Suspect]
     Indication: HYPERCHLORHYDRIA
     Route: 048
     Dates: end: 20110701
  5. TAMSULOSIN HCL [Concomitant]
     Indication: GASTROINTESTINAL DISORDER
     Route: 048
  6. LOSARTAN POTASSIUM [Concomitant]
     Route: 048
  7. CRESTOR [Suspect]
     Indication: HYPERCHOLESTEROLAEMIA
     Route: 048
  8. NEXIUM [Suspect]
     Route: 048
     Dates: start: 20110101

REACTIONS (2)
  - SLEEP DISORDER DUE TO GENERAL MEDICAL CONDITION, INSOMNIA TYPE [None]
  - NEUROPATHY PERIPHERAL [None]
